FAERS Safety Report 6943986-3 (Version None)
Quarter: 2010Q3

REPORT INFORMATION
  Report Type: 
  Country: None (occurrence: None)
  Receive Date: 20100827
  Receipt Date: 20100823
  Transmission Date: 20110219
  Serious: Yes (Other)
  Sender: FDA-Public Use
  Company Number: BR-ABBOTT-09P-020-0614771-00

PATIENT
  Sex: Female
  Weight: 85 kg

DRUGS (21)
  1. HUMIRA [Suspect]
     Indication: RHEUMATOID ARTHRITIS
     Route: 058
     Dates: start: 20091001, end: 20100101
  2. HUMIRA [Suspect]
  3. SYNTHROID [Concomitant]
     Indication: THYROID DISORDER
     Route: 048
  4. OMEPRAZOLE [Concomitant]
     Indication: GASTRIC DISORDER
     Route: 048
  5. PREDSIM [Concomitant]
     Indication: RHEUMATOID ARTHRITIS
     Route: 048
  6. PREDSIM [Concomitant]
     Route: 048
  7. CITALOPRAM HYDROBROMIDE [Concomitant]
     Indication: EMOTIONAL DISORDER
     Route: 048
  8. CITALOPRAM HYDROBROMIDE [Concomitant]
     Indication: PROPHYLAXIS
  9. MODURETIC 5-50 [Concomitant]
     Indication: HYPERTENSION
     Route: 048
  10. MODURETIC 5-50 [Concomitant]
     Route: 048
  11. CLARITHROMYCIN [Concomitant]
     Indication: ARTHRITIS
     Dosage: WHEN DOES NOT HAVE PAIN USE 1/2
     Route: 048
  12. OSCAL [Concomitant]
     Indication: BONE DISORDER
     Route: 048
  13. OSCAL [Concomitant]
     Indication: PROPHYLAXIS AGAINST GASTROINTESTINAL ULCER
  14. ARADOIS [Concomitant]
     Indication: HYPERTENSION
     Route: 048
  15. MONOTRIAN 40 MG [Concomitant]
     Indication: LABYRINTHITIS
     Route: 048
  16. DIPYRONE [Concomitant]
     Indication: PAIN
     Dosage: 500MG DAILY WHEN NECESSARY
     Route: 048
  17. METHOTREXATE [Concomitant]
     Indication: ARTHRITIS
     Route: 048
  18. BONIVA [Concomitant]
     Indication: BONE DISORDER
     Route: 048
  19. BONIVA [Concomitant]
     Indication: CALCIUM METABOLISM DISORDER
  20. BETA CYCLODEXTRIN NIMESULIDE [Concomitant]
     Indication: RHEUMATOID ARTHRITIS
     Route: 048
  21. ARA 2 [Concomitant]
     Indication: RHEUMATOID ARTHRITIS
     Route: 048

REACTIONS (5)
  - ARTHRALGIA [None]
  - DRUG INEFFECTIVE [None]
  - IMMUNODEFICIENCY [None]
  - INFLUENZA [None]
  - PAIN IN EXTREMITY [None]
